FAERS Safety Report 5249938-6 (Version None)
Quarter: 2007Q1

REPORT INFORMATION
  Report Type: 
  Country: None (occurrence: None)
  Receive Date: 20070228
  Receipt Date: 20060106
  Transmission Date: 20070707
  Serious: No
  Sender: FDA-Public Use
  Company Number: US-GLAXOSMITHKLINE-A0588154A

PATIENT
  Age: 59 Year
  Sex: Female

DRUGS (7)
  1. LAMICTAL [Suspect]
     Indication: DEPRESSION
     Dosage: 50MG PER DAY
     Route: 048
     Dates: start: 20051222
  2. PREDNISONE [Concomitant]
  3. ESTRADIOL [Concomitant]
  4. SYNTHROID [Concomitant]
  5. OMEPRAZOLE [Concomitant]
  6. ALLEGRA D 24 HOUR [Concomitant]
  7. HYDROCODONE [Concomitant]

REACTIONS (6)
  - ANOREXIA [None]
  - BACK INJURY [None]
  - CLUMSINESS [None]
  - DEPRESSION [None]
  - FALL [None]
  - INSOMNIA [None]
